FAERS Safety Report 8790218 (Version 1)
Quarter: 2012Q4

REPORT INFORMATION
  Report Type: Report from Study
  Country: US (occurrence: US)
  Receive Date: 20120917
  Receipt Date: 20120917
  Transmission Date: 20130627
  Serious: Yes (Hospitalization)
  Sender: FDA-Public Use
  Company Number: US-CELGENEUS-163-21880-12090748

PATIENT
  Age: 29 Year
  Sex: Female
  Weight: 64.1 kg

DRUGS (6)
  1. REVLIMID [Suspect]
     Indication: HODGKIN^S DISEASE NODULAR SCLEROSIS STAGE IV
     Dosage: 15 Milligram
     Route: 048
     Dates: start: 20120803, end: 20120903
  2. EVEROLIMUS [Suspect]
     Indication: HODGKIN^S LYMPHOMA
     Dosage: 5 Milligram
     Route: 048
     Dates: start: 20120803, end: 20120903
  3. NYSTATIN-LIDOCAINE-DIPHENHYDRAMINE HCL [Concomitant]
     Indication: MUCOSITIS
     Dosage: 1.6g-1.6g-0.2g/237mL; 15mL
     Route: 048
  4. PENICILLIN V POTASSIUM [Concomitant]
     Indication: ANTIBACTERIAL PROPHYLAXIS
     Dosage: 1000 Milligram
     Route: 048
  5. ASPIRIN [Concomitant]
     Indication: DRUG USE FOR UNKNOWN INDICATION
     Dosage: 81 Milligram
     Route: 048
  6. DALTEPARIN [Concomitant]
     Indication: PROPHYLAXIS
     Route: 065

REACTIONS (3)
  - Stomatitis [Unknown]
  - Decreased appetite [Unknown]
  - Pyrexia [Unknown]
